FAERS Safety Report 6825620-6 (Version None)
Quarter: 2010Q3

REPORT INFORMATION
  Report Type: 
  Country: None (occurrence: None)
  Receive Date: 20100708
  Receipt Date: 20070317
  Transmission Date: 20110219
  Serious: No
  Sender: FDA-Public Use
  Company Number: US-PFIZER INC-2007000913

PATIENT
  Age: 49 Year
  Sex: Female
  Weight: 94.35 kg

DRUGS (12)
  1. CHANTIX [Suspect]
     Indication: EX-TOBACCO USER
     Route: 048
  2. STATINS [Suspect]
  3. ZYRTEC [Concomitant]
  4. ASTELIN [Concomitant]
     Route: 045
  5. NASACORT [Concomitant]
     Route: 045
  6. OPTIVAR [Concomitant]
  7. ATARAX [Concomitant]
  8. PRILOSEC [Concomitant]
  9. VICODIN [Concomitant]
  10. SKELAXIN [Concomitant]
  11. LUNESTA [Concomitant]
  12. CLONAZEPAM [Concomitant]

REACTIONS (1)
  - MYALGIA [None]
